FAERS Safety Report 6144994-5 (Version None)
Quarter: 2009Q2

REPORT INFORMATION
  Report Type: 
  Country: None (occurrence: None)
  Receive Date: 20090406
  Receipt Date: 20090325
  Transmission Date: 20091009
  Serious: Yes (Life-Threatening, Hospitalization)
  Sender: FDA-Public Use
  Company Number: JP-BAYER-200910904BYL

PATIENT
  Age: 76 Year
  Sex: Female

DRUGS (10)
  1. ASPIRIN [Suspect]
     Indication: DRUG USE FOR UNKNOWN INDICATION
     Route: 048
  2. CIPROXAN [Suspect]
     Indication: PNEUMONIA
     Route: 065
     Dates: start: 20071023
  3. EXCEGRAN [Suspect]
     Indication: DRUG USE FOR UNKNOWN INDICATION
     Route: 048
  4. TAKEPRON [Suspect]
     Indication: DRUG USE FOR UNKNOWN INDICATION
     Route: 048
  5. PL GRAN. [Suspect]
     Indication: PYREXIA
     Route: 048
     Dates: start: 20071013
  6. CEFZON [Suspect]
     Indication: PYREXIA
     Route: 048
     Dates: start: 20071013
  7. VOLTAREN [Suspect]
     Indication: PYREXIA
     Route: 054
     Dates: start: 20071013
  8. DALACIN-S [Suspect]
     Indication: PNEUMONIA
     Route: 065
     Dates: start: 20071023
  9. LINEZOLID [Suspect]
     Indication: PNEUMONIA
     Route: 065
     Dates: start: 20071023
  10. BAKTAR [Suspect]
     Indication: PNEUMONIA
     Route: 048
     Dates: start: 20071115

REACTIONS (3)
  - ACUTE GENERALISED EXANTHEMATOUS PUSTULOSIS [None]
  - SUBARACHNOID HAEMORRHAGE [None]
  - TOXIC EPIDERMAL NECROLYSIS [None]
